FAERS Safety Report 7980403-9 (Version None)
Quarter: 2011Q4

REPORT INFORMATION
  Report Type: 
  Country: None (occurrence: None)
  Receive Date: 20111214
  Receipt Date: 20111207
  Transmission Date: 20120403
  Serious: Yes (Other)
  Sender: FDA-Public Use
  Company Number: TR-COVIDIEN/TYCO HEALTHCARE/MALLINCKRODT-T201102893

PATIENT
  Age: 55 Year
  Sex: Female

DRUGS (3)
  1. SODIUM IODIDE I 131 [Suspect]
     Dosage: 200 MCI, UNK
  2. SODIUM IODIDE I 131 [Suspect]
     Dosage: 200 MCI, UNK
  3. SODIUM IODIDE I 131 [Suspect]
     Dosage: 200 MCI, UNK

REACTIONS (1)
  - DACRYOSTENOSIS ACQUIRED [None]
